FAERS Safety Report 8540545-6 (Version None)
Quarter: 2012Q3

REPORT INFORMATION
  Report Type: 
  Country: None (occurrence: None)
  Receive Date: 20120726
  Receipt Date: 20110804
  Transmission Date: 20120928
  Serious: No
  Sender: FDA-Public Use
  Company Number: US-ASTRAZENECA-2011SE46865

PATIENT
  Age: 76 Year
  Sex: Female

DRUGS (3)
  1. THYROID MEDICATION [Concomitant]
  2. SEROQUEL [Suspect]
     Indication: INSOMNIA
     Route: 048
     Dates: start: 20080101
  3. BP MEDICATION [Concomitant]

REACTIONS (9)
  - MUSCULOSKELETAL STIFFNESS [None]
  - DRUG DOSE OMISSION [None]
  - HEADACHE [None]
  - ABDOMINAL PAIN [None]
  - WEIGHT INCREASED [None]
  - INSOMNIA [None]
  - WITHDRAWAL SYNDROME [None]
  - HUNGER [None]
  - APATHY [None]
